FAERS Safety Report 12541333 (Version 4)
Quarter: 2016Q3

REPORT INFORMATION
  Report Type: Spontaneous
  Country: US (occurrence: US)
  Receive Date: 20160708
  Receipt Date: 20160907
  Transmission Date: 20161109
  Serious: Yes (Other)
  Sender: FDA-Public Use
  Company Number: US-OTSUKA-2016_016079

PATIENT
  Age: 46 Year
  Sex: Female

DRUGS (13)
  1. REXULTI [Suspect]
     Active Substance: BREXPIPRAZOLE
     Indication: ADJUVANT THERAPY
     Dosage: 1 MG, QD
     Route: 048
  2. REXULTI [Suspect]
     Active Substance: BREXPIPRAZOLE
     Dosage: ? OF A 1 MG , QD (3RD DAY )
     Route: 065
  3. VITAMIN D [Concomitant]
     Active Substance: CHOLECALCIFEROL
     Indication: PRODUCT USED FOR UNKNOWN INDICATION
     Dosage: UNK
     Route: 065
  4. FLUOXETINE [Concomitant]
     Active Substance: FLUOXETINE HYDROCHLORIDE
     Indication: HOT FLUSH
     Dosage: UNK
     Route: 065
  5. REXULTI [Suspect]
     Active Substance: BREXPIPRAZOLE
     Dosage: 0.5 MG, QD
     Route: 048
     Dates: start: 20160614
  6. DIAZEPAM. [Concomitant]
     Active Substance: DIAZEPAM
     Indication: PANIC ATTACK
     Dosage: 5 MG, UNK (UP TO THREE TIMES A DAY BUT USUALLY TAKE TWO TIMES A DAY)
     Route: 065
  7. BENTYL [Concomitant]
     Active Substance: DICYCLOMINE HYDROCHLORIDE
     Indication: DIVERTICULITIS
     Dosage: 1 DF, TID
     Route: 065
  8. REXULTI [Suspect]
     Active Substance: BREXPIPRAZOLE
     Dosage: ? OF A 0.5 MG, QD (4TH DAY)
     Route: 065
  9. ATORVASTATIN [Concomitant]
     Active Substance: ATORVASTATIN
     Indication: BLOOD CHOLESTEROL INCREASED
     Dosage: UNK, QD (AT NIGHT)
     Route: 065
  10. REXULTI [Suspect]
     Active Substance: BREXPIPRAZOLE
     Dosage: ? OF A 1 MG, QD (6TH DAY)
     Route: 048
  11. ESTRADIOL. [Concomitant]
     Active Substance: ESTRADIOL
     Indication: MENOPAUSE
     Dosage: UNK, QD (AT NIGHT)
     Route: 065
  12. REXULTI [Suspect]
     Active Substance: BREXPIPRAZOLE
     Dosage: ? OF A 1 MG , QD (8TH DAY )
     Route: 048
     Dates: end: 20160627
  13. DIAZEPAM. [Concomitant]
     Active Substance: DIAZEPAM
     Indication: MUSCLE SPASMS
     Dosage: UNK, BID
     Route: 065

REACTIONS (20)
  - Mood altered [Not Recovered/Not Resolved]
  - Screaming [Unknown]
  - Contusion [Not Recovered/Not Resolved]
  - Poor quality sleep [Not Recovered/Not Resolved]
  - Drug dose omission [Unknown]
  - Narcolepsy [Not Recovered/Not Resolved]
  - Mood swings [Not Recovered/Not Resolved]
  - Fall [Not Recovered/Not Resolved]
  - Musculoskeletal pain [Not Recovered/Not Resolved]
  - Hypersensitivity [Unknown]
  - Aggression [Not Recovered/Not Resolved]
  - Feeling abnormal [Not Recovered/Not Resolved]
  - Head banging [Not Recovered/Not Resolved]
  - Abnormal behaviour [Not Recovered/Not Resolved]
  - Anxiety [Unknown]
  - Wrong technique in product usage process [Unknown]
  - Anger [Not Recovered/Not Resolved]
  - Feeling drunk [Unknown]
  - Withdrawal syndrome [Not Recovered/Not Resolved]
  - Off label use [Unknown]

NARRATIVE: CASE EVENT DATE: 20160614
